FAERS Safety Report 23863471 (Version 1)
Quarter: 2024Q2

REPORT INFORMATION
  Report Type: Spontaneous
  Country: PT (occurrence: PT)
  Receive Date: 20240516
  Receipt Date: 20240516
  Transmission Date: 20240716
  Serious: Yes (Death, Other)
  Sender: FDA-Public Use
  Company Number: PT-INCYTE CORPORATION-2023IN006875

PATIENT

DRUGS (1)
  1. PEMAZYRE [Suspect]
     Active Substance: PEMIGATINIB
     Indication: Cholangiocarcinoma
     Dosage: 9 MILLIGRAM
     Route: 065
     Dates: end: 202402

REACTIONS (7)
  - Death [Fatal]
  - Cholangiocarcinoma [Unknown]
  - Hepatic mass [Unknown]
  - Hypertrichosis [Unknown]
  - Pyrexia [Unknown]
  - Blood bilirubin increased [Not Recovered/Not Resolved]
  - Disease progression [Unknown]

NARRATIVE: CASE EVENT DATE: 20240401
